FAERS Safety Report 4342722-7 (Version None)
Quarter: 2004Q2

REPORT INFORMATION
  Report Type: 
  Country: None (occurrence: None)
  Receive Date: 20040415
  Receipt Date: 20040331
  Transmission Date: 20050107
  Serious: Yes (Hospitalization)
  Sender: FDA-Public Use
  Company Number: 236192

PATIENT
  Age: 14 Year
  Sex: Male
  Weight: 36.7 kg

DRUGS (2)
  1. NOVOLOG [Suspect]
     Indication: DIABETES MELLITUS INSULIN-DEPENDENT
     Dosage: 50-60 IU, QD, SUBCUTANEOUS
     Route: 058
     Dates: start: 20030401
  2. ANIMAS IR-1000 INSULIN PUMP [Concomitant]

REACTIONS (4)
  - DEHYDRATION [None]
  - DIABETIC KETOACIDOSIS [None]
  - VOMITING [None]
  - WHITE BLOOD CELL COUNT INCREASED [None]
